FAERS Safety Report 9618902 (Version 2)
Quarter: 2013Q4

REPORT INFORMATION
  Report Type: Spontaneous
  Country: IT (occurrence: IT)
  Receive Date: 20131014
  Receipt Date: 20131029
  Transmission Date: 20140711
  Serious: Yes (Hospitalization)
  Sender: FDA-Public Use
  Company Number: IT-MYLANLABS-2013S1022216

PATIENT
  Age: 26 Year
  Sex: Female

DRUGS (4)
  1. QUETIAPINE [Suspect]
     Indication: PRODUCT USED FOR UNKNOWN INDICATION
     Route: 048
     Dates: start: 20130816, end: 20130816
  2. VALIUM [Concomitant]
     Indication: PRODUCT USED FOR UNKNOWN INDICATION
     Dosage: 5 MG/ML ORAL DROPS SOLUTION
  3. ARIPIPRAZOLE [Concomitant]
     Indication: DEPRESSION
  4. CANNABIS [Concomitant]
     Indication: PRODUCT USED FOR UNKNOWN INDICATION
     Dosage: ADVISED STOPPING USE FOR ONE WEEK

REACTIONS (4)
  - Drug abuse [Recovering/Resolving]
  - Intentional self-injury [Recovering/Resolving]
  - Miosis [Recovering/Resolving]
  - Bradyphrenia [Recovering/Resolving]
